FAERS Safety Report 4293639-8 (Version None)
Quarter: 2004Q1

REPORT INFORMATION
  Report Type: 
  Country: None (occurrence: None)
  Receive Date: 20040211
  Receipt Date: 20040126
  Transmission Date: 20041129
  Serious: Yes (Other)
  Sender: FDA-Public Use
  Company Number: USA030946697

PATIENT
  Age: 56 Year
  Sex: Female
  Weight: 48 kg

DRUGS (3)
  1. FORTEO [Suspect]
     Indication: OSTEOPOROSIS
     Dosage: 20 UG/DAY
     Dates: start: 20030401
  2. FOSAMAX [Concomitant]
  3. CALCIUM [Concomitant]

REACTIONS (3)
  - FALL [None]
  - PATELLA FRACTURE [None]
  - PHARMACEUTICAL PRODUCT COMPLAINT [None]
